FAERS Safety Report 17695246 (Version 1)
Quarter: 2020Q2

REPORT INFORMATION
  Report Type: Spontaneous
  Country: US (occurrence: US)
  Receive Date: 20200422
  Receipt Date: 20200422
  Transmission Date: 20200714
  Serious: Yes (Other)
  Sender: FDA-Public Use
  Company Number: US-NAPPMUNDI-USA-2019-0149437

PATIENT
  Sex: Female

DRUGS (1)
  1. OXYCONTIN [Suspect]
     Active Substance: OXYCODONE HYDROCHLORIDE
     Indication: BACK PAIN
     Dosage: 40 MG, 8 TABLETS PER DAY
     Route: 048
     Dates: end: 2002

REACTIONS (7)
  - Abdominal discomfort [Recovered/Resolved]
  - Drug abuse [Unknown]
  - Mobility decreased [Recovered/Resolved]
  - Malaise [Recovered/Resolved]
  - Unevaluable event [Recovered/Resolved]
  - Drug dose titration not performed [Recovered/Resolved]
  - Off label use [Recovered/Resolved]

NARRATIVE: CASE EVENT DATE: 2002
